FAERS Safety Report 16338366 (Version 2)
Quarter: 2019Q3

REPORT INFORMATION
  Report Type: Spontaneous
  Country: FR (occurrence: FR)
  Receive Date: 20190521
  Receipt Date: 20190710
  Transmission Date: 20191004
  Serious: Yes (Death, Other)
  Sender: FDA-Public Use
  Company Number: FR-BAYER-2019-094926

PATIENT
  Age: 74 Year
  Sex: Male

DRUGS (3)
  1. STIVARGA [Suspect]
     Active Substance: REGORAFENIB
     Indication: COLORECTAL CANCER METASTATIC
     Dosage: 160 MG, QD
     Dates: end: 201805
  2. STIVARGA [Suspect]
     Active Substance: REGORAFENIB
     Indication: COLORECTAL CANCER METASTATIC
     Dosage: 120 MG, QD
  3. STIVARGA [Suspect]
     Active Substance: REGORAFENIB
     Indication: COLORECTAL CANCER METASTATIC
     Dosage: 80 MG, QD

REACTIONS (8)
  - Pre-existing condition improved [Recovering/Resolving]
  - Dyspnoea [Recovering/Resolving]
  - Metastases to central nervous system [Fatal]
  - Anxiety [None]
  - Off label use [None]
  - General physical health deterioration [None]
  - Colorectal cancer metastatic [Fatal]
  - Hypertension [None]

NARRATIVE: CASE EVENT DATE: 2017
